FAERS Safety Report 8769768 (Version 1)
Quarter: 2012Q4

REPORT INFORMATION
  Report Type: Report from Study
  Country: US (occurrence: US)
  Receive Date: 20120906
  Receipt Date: 20120906
  Transmission Date: 20130627
  Serious: Yes (Other)
  Sender: FDA-Public Use
  Company Number: US-MILLENNIUM PHARMACEUTICALS, INC.-2012-06019

PATIENT

DRUGS (8)
  1. VELCADE [Suspect]
     Indication: MULTIPLE MYELOMA
  2. THALIDOMIDE [Suspect]
     Indication: MULTIPLE MYELOMA
  3. DEXAMETHASONE [Suspect]
     Indication: MULTIPLE MYELOMA
  4. MELPHALAN [Suspect]
     Indication: MULTIPLE MYELOMA
     Dosage: 200 mg/m2, UNK
  5. CISPLATIN [Suspect]
     Indication: MULTIPLE MYELOMA
  6. ADRIAMYCIN [Suspect]
     Indication: MULTIPLE MYELOMA
  7. CYCLOPHOSPHAMIDE [Suspect]
     Indication: MULTIPLE MYELOMA
  8. ETOPOSIDE [Suspect]
     Indication: MULTIPLE MYELOMA

REACTIONS (2)
  - Prostate cancer [Unknown]
  - Second primary malignancy [Unknown]
